FAERS Safety Report 9234191 (Version 1)
Quarter: 2013Q1

REPORT INFORMATION
  Report Type: Spontaneous
  Country: US (occurrence: None)
  Receive Date: 20121031
  Receipt Date: 20121031
  Transmission Date: 20140127
  Serious: No
  Sender: FDA-Public Use
  Company Number: PHEH2012US015406

PATIENT
  Age: 59 Year
  Sex: Male

DRUGS (7)
  1. GILENYA (FTY) CAPSULE, 0.5MG [Suspect]
     Route: 048
  2. BYSTOLIC (NEBIVOLOL HYDROCHLORIDE) TABLET [Concomitant]
  3. MULTIVITAMIN (VITAMINS NOS) CAPSULE [Concomitant]
  4. VITAMIN D (ERGOCALCIFEROL) TABLET [Concomitant]
  5. VITAMIN E (TOCOPHEROL) CAPSULE [Concomitant]
  6. ALEVE (NAPROXEN SODIUM) CAPSULE [Concomitant]
  7. FAMPRIDINE (FAMPRIDINE) TABLET [Concomitant]

REACTIONS (2)
  - Musculoskeletal stiffness [None]
  - Myoclonus [None]
